FAERS Safety Report 16172906 (Version 1)
Quarter: 2019Q2

REPORT INFORMATION
  Report Type: Other
  Country: NZ (occurrence: NZ)
  Receive Date: 20190409
  Receipt Date: 20190409
  Transmission Date: 20190711
  Serious: Yes (Other)
  Sender: FDA-Public Use
  Company Number: NZ-FDC LIMITED-2065527

PATIENT
  Age: 85 Year
  Sex: Male

DRUGS (1)
  1. CIPROFLOXACIN. [Suspect]
     Active Substance: CIPROFLOXACIN
     Indication: ARTHRITIS INFECTIVE
     Route: 048

REACTIONS (3)
  - Delirium [Recovered/Resolved]
  - Hallucination [Unknown]
  - Myoclonus [Recovered/Resolved]
